FAERS Safety Report 6716097-X (Version None)
Quarter: 2010Q2

REPORT INFORMATION
  Report Type: 
  Country: None (occurrence: None)
  Receive Date: 20100507
  Receipt Date: 20100503
  Transmission Date: 20101027
  Serious: Yes (Hospitalization)
  Sender: FDA-Public Use
  Company Number: B0650699A

PATIENT
  Sex: Female

DRUGS (6)
  1. AUGMENTIN '125' [Suspect]
     Route: 048
     Dates: start: 20100311, end: 20100314
  2. AMLOR [Concomitant]
     Dosage: 5MG PER DAY
     Route: 048
  3. ALDACTAZINE [Concomitant]
     Route: 048
  4. TAVANIC [Concomitant]
     Route: 048
     Dates: start: 20100314, end: 20100317
  5. POLARAMINE [Concomitant]
     Route: 048
     Dates: start: 20100314
  6. TARDYFERON B9 [Concomitant]
     Route: 048
     Dates: start: 20100315

REACTIONS (11)
  - ACUTE GENERALISED EXANTHEMATOUS PUSTULOSIS [None]
  - CHOLESTASIS [None]
  - CONDITION AGGRAVATED [None]
  - DERMATITIS EXFOLIATIVE [None]
  - HEPATOCELLULAR INJURY [None]
  - INFLAMMATION [None]
  - PRURITUS [None]
  - PYREXIA [None]
  - RASH [None]
  - RASH PUSTULAR [None]
  - RENAL FAILURE [None]
